FAERS Safety Report 8018824-0 (Version None)
Quarter: 2012Q1

REPORT INFORMATION
  Report Type: 
  Country: None (occurrence: None)
  Receive Date: 20120103
  Receipt Date: 20111227
  Transmission Date: 20120608
  Serious: Yes (Hospitalization)
  Sender: FDA-Public Use
  Company Number: DE-PFIZER INC-2011313749

PATIENT
  Age: 59 Year
  Sex: Male
  Weight: 90 kg

DRUGS (3)
  1. DEXAMETHASONE [Suspect]
     Indication: PLASMACYTOMA
     Dosage: 40 MG, UNK
     Route: 042
     Dates: start: 20100720, end: 20100808
  2. BORTEZOMIB [Suspect]
     Indication: PLASMACYTOMA
     Dosage: 2.6 MG, UNK
     Route: 042
     Dates: start: 20100720
  3. DOXORUBICIN HCL [Suspect]
     Indication: PLASMACYTOMA
     Dosage: 18 MG, UNK
     Route: 042
     Dates: start: 20100720

REACTIONS (2)
  - PULMONARY EMBOLISM [None]
  - PNEUMONIA [None]
